FAERS Safety Report 16752764 (Version 1)
Quarter: 2019Q3

REPORT INFORMATION
  Report Type: Spontaneous
  Country: US (occurrence: US)
  Receive Date: 20190828
  Receipt Date: 20190828
  Transmission Date: 20191005
  Serious: No
  Sender: FDA-Public Use
  Company Number: US-GLAXOSMITHKLINE-US2019154591

PATIENT
  Sex: Male

DRUGS (2)
  1. ABREVA [Suspect]
     Active Substance: DOCOSANOL
     Dosage: (3 TO 5 TIMES A DAY FOR 5 OR 6 SUCCESSIVE DAYS)UNK
     Dates: start: 20190805, end: 201908
  2. ABREVA [Suspect]
     Active Substance: DOCOSANOL
     Indication: ORAL HERPES
     Dosage: UNK (3 TO 5 TIMES A DAY FOR 5 OR 6 SUCCESSIVE DAYS)
     Dates: start: 20190805, end: 201908

REACTIONS (2)
  - Inappropriate schedule of product administration [Unknown]
  - Incorrect product administration duration [Unknown]
